FAERS Safety Report 9088662 (Version 2)
Quarter: 2013Q1

REPORT INFORMATION
  Report Type: Spontaneous
  Country: DK (occurrence: DK)
  Receive Date: 20130131
  Receipt Date: 20130214
  Transmission Date: 20140127
  Serious: Yes (Other)
  Sender: FDA-Public Use
  Company Number: DK-PFIZER INC-2013031025

PATIENT
  Age: 87 Year
  Sex: Female

DRUGS (1)
  1. XALATAN [Suspect]
     Indication: GLAUCOMA
     Dosage: UNK/1XDAY
     Route: 047
     Dates: start: 2011

REACTIONS (5)
  - Blindness [Not Recovered/Not Resolved]
  - Cerebral infarction [Unknown]
  - Aphasia [Not Recovered/Not Resolved]
  - Drug ineffective [Unknown]
  - Glaucoma [Not Recovered/Not Resolved]
